FAERS Safety Report 5173619-0 (Version None)
Quarter: 2006Q4

REPORT INFORMATION
  Report Type: 
  Country: None (occurrence: None)
  Receive Date: 20061206
  Receipt Date: 20061121
  Transmission Date: 20070319
  Serious: Yes (Hospitalization)
  Sender: FDA-Public Use
  Company Number: 234495K06USA

PATIENT
  Age: 27 Year
  Sex: Female
  Weight: 54.8852 kg

DRUGS (4)
  1. REBIF [Suspect]
     Indication: MULTIPLE SCLEROSIS
     Dosage: 44 MCG, 3 IN 1 WEEKS, SUBCUTANEOUS
     Route: 058
     Dates: start: 20060301
  2. INSULIN [Suspect]
  3. MAVIK [Suspect]
  4. PAMELOR [Concomitant]

REACTIONS (16)
  - AGGRESSION [None]
  - APHASIA [None]
  - BLOOD GLUCOSE DECREASED [None]
  - CEREBRAL ATROPHY [None]
  - CHEILITIS [None]
  - COMPLEX PARTIAL SEIZURES [None]
  - CONFUSIONAL STATE [None]
  - DEPRESSED LEVEL OF CONSCIOUSNESS [None]
  - DROOLING [None]
  - DRUG EFFECT DECREASED [None]
  - GRUNTING [None]
  - HEADACHE [None]
  - HYPERAESTHESIA [None]
  - LIP SWELLING [None]
  - MEMORY IMPAIRMENT [None]
  - URINE KETONE BODY PRESENT [None]
